FAERS Safety Report 7806749-2 (Version None)
Quarter: 2011Q4

REPORT INFORMATION
  Report Type: 
  Country: None (occurrence: None)
  Receive Date: 20111011
  Receipt Date: 20111003
  Transmission Date: 20120403
  Serious: Yes (Hospitalization)
  Sender: FDA-Public Use
  Company Number: FR-JNJFOC-20111002696

PATIENT
  Sex: Female

DRUGS (1)
  1. HALDOL [Suspect]
     Indication: PRODUCT USED FOR UNKNOWN INDICATION
     Route: 065

REACTIONS (6)
  - PALLOR [None]
  - TREMOR [None]
  - PYREXIA [None]
  - VISUAL IMPAIRMENT [None]
  - MUSCLE CONTRACTURE [None]
  - HYPERHIDROSIS [None]
